FAERS Safety Report 9438966 (Version 2)
Quarter: 2013Q3

REPORT INFORMATION
  Report Type: Spontaneous
  Country: IT (occurrence: IT)
  Receive Date: 20130802
  Receipt Date: 20130821
  Transmission Date: 20140515
  Serious: Yes (Other)
  Sender: FDA-Public Use
  Company Number: PHHY2013IT082259

PATIENT
  Age: 38 Year
  Sex: Female

DRUGS (5)
  1. SERTRALINE [Suspect]
     Indication: DEPRESSION
     Dosage: 100 MG, QD
     Route: 048
     Dates: start: 20130315, end: 20130707
  2. MUTABON [Concomitant]
  3. EN [Concomitant]
  4. SURMONTIL//TRIMIPRAMINE [Concomitant]
     Dosage: 25 MG, UNK
  5. HALDOL [Concomitant]
     Dosage: 10 DRP, UNK

REACTIONS (1)
  - Suicidal ideation [Recovering/Resolving]
